FAERS Safety Report 10186762 (Version 7)
Quarter: 2015Q2

REPORT INFORMATION
  Report Type: Report from Study
  Country: TW (occurrence: TW)
  Receive Date: 20140521
  Receipt Date: 20150520
  Transmission Date: 20150821
  Serious: Yes (Hospitalization)
  Sender: FDA-Public Use
  Company Number: PHHY2014TW060278

PATIENT
  Age: 71 Year
  Sex: Female
  Weight: 43.5 kg

DRUGS (2)
  1. AMN107 [Suspect]
     Active Substance: NILOTINIB
     Indication: CHRONIC MYELOID LEUKAEMIA
     Dosage: 450 MG, QD
     Route: 048
     Dates: start: 20140120, end: 20140307
  2. AMN107 [Suspect]
     Active Substance: NILOTINIB
     Dosage: 450 MG, QD
     Route: 048
     Dates: end: 20150406

REACTIONS (9)
  - Sepsis [Recovered/Resolved]
  - Productive cough [Not Recovered/Not Resolved]
  - Thrombocytopenia [Unknown]
  - Pneumonia [Not Recovered/Not Resolved]
  - Febrile neutropenia [Recovered/Resolved]
  - Chills [Recovering/Resolving]
  - Hypotension [Recovering/Resolving]
  - Leukopenia [Recovering/Resolving]
  - Pyrexia [Recovering/Resolving]

NARRATIVE: CASE EVENT DATE: 20140307
